FAERS Safety Report 5306597-1 (Version None)
Quarter: 2007Q2

REPORT INFORMATION
  Report Type: 
  Country: None (occurrence: None)
  Receive Date: 20070424
  Receipt Date: 20070411
  Transmission Date: 20071010
  Serious: Yes (Other)
  Sender: FDA-Public Use
  Company Number: GB-PFIZER INC-2007012078

PATIENT
  Sex: Female
  Weight: 78.4 kg

DRUGS (5)
  1. EXUBERA [Suspect]
     Indication: DIABETES MELLITUS NON-INSULIN-DEPENDENT
     Route: 055
     Dates: start: 20070205, end: 20070212
  2. HYPURIN BOVINE LENTE [Concomitant]
     Route: 058
  3. BREVINOR [Concomitant]
     Route: 048
  4. METFORMIN HCL [Concomitant]
     Route: 048
  5. ORAL CONTRACEPTIVE NOS [Concomitant]

REACTIONS (3)
  - COUGH [None]
  - DYSPNOEA [None]
  - THROAT TIGHTNESS [None]
